FAERS Safety Report 14074644 (Version 1)
Quarter: 2017Q4

REPORT INFORMATION
  Report Type: Spontaneous
  Country: FR (occurrence: FR)
  Receive Date: 20171010
  Receipt Date: 20171010
  Transmission Date: 20180321
  Serious: Yes (Other)
  Sender: FDA-Public Use
  Company Number: PHHY2017FR147482

PATIENT
  Sex: Female

DRUGS (3)
  1. CHIBRO CADRON [Concomitant]
     Active Substance: DEXAMETHASONE SODIUM PHOSPHATE\NEOMYCIN SULFATE
     Indication: PRODUCT USED FOR UNKNOWN INDICATION
     Route: 065
  2. ATROPINE SOLUTION 1% [Suspect]
     Active Substance: ATROPINE
     Indication: MYDRIASIS
     Dosage: 1 GTT, TID
     Route: 047
     Dates: start: 201707, end: 201707
  3. ATROPINE SOLUTION 1% [Suspect]
     Active Substance: ATROPINE
     Dosage: 1 GTT, TID
     Route: 047
     Dates: start: 201709, end: 201709

REACTIONS (2)
  - Retinal detachment [Recovered/Resolved]
  - Visual impairment [Recovered/Resolved]

NARRATIVE: CASE EVENT DATE: 201707
